FAERS Safety Report 6295255-5 (Version None)
Quarter: 2009Q3

REPORT INFORMATION
  Report Type: 
  Country: None (occurrence: None)
  Receive Date: 20090803
  Receipt Date: 20090721
  Transmission Date: 20100115
  Serious: Yes (Other)
  Sender: FDA-Public Use
  Company Number: GB-MYLANLABS-2009S1012390

PATIENT
  Age: 16 Year
  Sex: Male
  Weight: 38.7 kg

DRUGS (4)
  1. RISPERIDONE [Suspect]
     Indication: DRUG USE FOR UNKNOWN INDICATION
     Route: 048
  2. CONCERTA [Suspect]
     Indication: ATTENTION DEFICIT/HYPERACTIVITY DISORDER
     Route: 048
  3. CONCERTA [Suspect]
     Route: 048
  4. VALPROATE SODIUM [Concomitant]
     Indication: EPILEPSY

REACTIONS (3)
  - EPISTAXIS [None]
  - HEADACHE [None]
  - HYPERTENSION [None]
